FAERS Safety Report 4578774-9 (Version None)
Quarter: 2005Q1

REPORT INFORMATION
  Report Type: 
  Country: None (occurrence: None)
  Receive Date: 20050207
  Receipt Date: 20050207
  Transmission Date: 20050727
  Serious: Yes (Hospitalization)
  Sender: FDA-Public Use
  Company Number: None

PATIENT
  Age: 32 Year
  Sex: Female
  Weight: 68.0396 kg

DRUGS (2)
  1. ZOLOFT [Suspect]
     Indication: DEPRESSION
     Dosage: (100MG? DAILY)
     Dates: start: 20031001, end: 20031101
  2. SYNTHROID [Concomitant]

REACTIONS (8)
  - ANGER [None]
  - CRYING [None]
  - DEPRESSION [None]
  - FEELING OF DESPAIR [None]
  - IMPAIRED WORK ABILITY [None]
  - MIGRAINE [None]
  - SUICIDAL IDEATION [None]
  - THINKING ABNORMAL [None]
